FAERS Safety Report 15607371 (Version 1)
Quarter: 2018Q4

REPORT INFORMATION
  Report Type: Spontaneous
  Country: BR (occurrence: BR)
  Receive Date: 20181112
  Receipt Date: 20181112
  Transmission Date: 20190205
  Serious: Yes (Other)
  Sender: FDA-Public Use
  Company Number: BR-ABBVIE-18P-020-2552290-00

PATIENT
  Sex: Female
  Weight: 48 kg

DRUGS (5)
  1. OMEGA 3 [Concomitant]
     Active Substance: OMEGA-3 FATTY ACIDS
     Indication: SKIN DISORDER
  2. DIVALCON ER [Suspect]
     Active Substance: DIVALPROEX SODIUM
     Indication: EPILEPSY
     Dosage: FORM STRENGTH: 500MG; DOSE/ FREQUENCY: 500MG AT NIGHT
     Route: 048
  3. GARDENAL [Concomitant]
     Active Substance: PHENOBARBITAL
     Indication: EPILEPSY
  4. ESCITALOPRAM OXALATE. [Concomitant]
     Active Substance: ESCITALOPRAM OXALATE
     Indication: PRODUCT USED FOR UNKNOWN INDICATION
     Dosage: ESCILEX (ESCITALOPRAM OXALATE); DAILY DOSE: 15 MG
  5. DIVALCON ER [Suspect]
     Active Substance: DIVALPROEX SODIUM
     Dosage: FORM STRENGTH: 250MG; DOSE/FREQUENCY: 250MG IN THE MORNING
     Route: 048

REACTIONS (6)
  - Rash [Unknown]
  - Inappropriate schedule of product administration [Unknown]
  - Lip swelling [Not Recovered/Not Resolved]
  - Acne [Unknown]
  - Acne [Unknown]
  - Cheilitis [Unknown]

NARRATIVE: CASE EVENT DATE: 2018
